FAERS Safety Report 18128273 (Version 1)
Quarter: 2020Q3

REPORT INFORMATION
  Report Type: Spontaneous
  Country: US (occurrence: US)
  Receive Date: 20200807
  Receipt Date: 20200807
  Transmission Date: 20201103
  Serious: Yes (Other)
  Sender: FDA-Public Use
  Company Number: None

PATIENT
  Age: 46 Year
  Sex: Female
  Weight: 64.8 kg

DRUGS (1)
  1. FENTANYL TRANSDERMAL SYSTEM [Suspect]
     Active Substance: FENTANYL
     Indication: PAIN
     Dosage: ?          QUANTITY:1 PATCH(ES);OTHER FREQUENCY:EVERY 48 HOURS;?
     Route: 062
     Dates: start: 20200724, end: 20200728

REACTIONS (6)
  - Insomnia [None]
  - Bone pain [None]
  - Pain [None]
  - Withdrawal syndrome [None]
  - Arthralgia [None]
  - Restless legs syndrome [None]

NARRATIVE: CASE EVENT DATE: 20200728
